FAERS Safety Report 21498836 (Version 1)
Quarter: 2022Q4

REPORT INFORMATION
  Report Type: Report from Study
  Country: US (occurrence: US)
  Receive Date: 20221024
  Receipt Date: 20221024
  Transmission Date: 20230112
  Serious: Yes (Death, Hospitalization, Other)
  Sender: FDA-Public Use
  Company Number: US-MYLANLABS-2022M1116259

PATIENT
  Age: 65 Year
  Sex: Female
  Weight: 54 kg

DRUGS (13)
  1. LEVOLEUCOVORIN CALCIUM [Suspect]
     Active Substance: LEVOLEUCOVORIN CALCIUM
     Indication: Adenocarcinoma gastric
     Dosage: 250 MILLILITER, Q2W
     Route: 042
     Dates: start: 20191028
  2. LEVOLEUCOVORIN CALCIUM [Suspect]
     Active Substance: LEVOLEUCOVORIN CALCIUM
     Dosage: UNK
     Route: 042
     Dates: start: 20191111, end: 20191113
  3. OXALIPLATIN [Suspect]
     Active Substance: OXALIPLATIN
     Indication: Adenocarcinoma gastric
     Dosage: 500 MILLILITER, Q2W
     Route: 042
     Dates: start: 20191028
  4. OXALIPLATIN [Suspect]
     Active Substance: OXALIPLATIN
     Dosage: UNK
     Route: 042
     Dates: start: 20191111, end: 20191113
  5. FLUOROURACIL [Suspect]
     Active Substance: FLUOROURACIL
     Indication: Adenocarcinoma gastric
     Dosage: 576 MILLILITER, Q2W
     Route: 042
     Dates: start: 20191028
  6. FLUOROURACIL [Suspect]
     Active Substance: FLUOROURACIL
     Dosage: UNK
     Route: 042
     Dates: start: 20191111, end: 20191113
  7. HEPARIN [Suspect]
     Active Substance: HEPARIN SODIUM
     Indication: Deep vein thrombosis
     Dosage: UNK, QH (700-1000 UNIT)
     Route: 042
     Dates: start: 20191121
  8. ZARXIO [Suspect]
     Active Substance: FILGRASTIM-SNDZ
     Indication: Neutropenia
     Dosage: 300 MILLIGRAM, QD
     Route: 058
     Dates: start: 20191122
  9. LOVENOX [Suspect]
     Active Substance: ENOXAPARIN SODIUM
     Indication: Deep vein thrombosis
     Dosage: 0.54 MILLILITER, BID
     Route: 065
     Dates: start: 20191123
  10. ZOSYN [Suspect]
     Active Substance: PIPERACILLIN SODIUM\TAZOBACTAM SODIUM
     Indication: Gastrointestinal infection
     Dosage: 4.5 MILLIGRAM, Q6H
     Route: 042
     Dates: start: 20191201
  11. UNASYN [Suspect]
     Active Substance: AMPICILLIN SODIUM\SULBACTAM SODIUM
     Indication: Gastrointestinal infection
     Dosage: 3 GRAM, ONCE
     Route: 065
     Dates: start: 20191201
  12. MORPHINE [Suspect]
     Active Substance: MORPHINE
     Indication: Encephalopathy
     Dosage: 1000 GRAM
     Route: 042
     Dates: start: 20191220
  13. MORPHINE [Suspect]
     Active Substance: MORPHINE
     Indication: Sepsis

REACTIONS (8)
  - Neutropenia [Fatal]
  - Septic shock [Fatal]
  - Anaemia [Fatal]
  - Encephalopathy [Fatal]
  - Deep vein thrombosis [Fatal]
  - Rectal haemorrhage [Fatal]
  - Hypocalcaemia [Fatal]
  - Syncope [Fatal]

NARRATIVE: CASE EVENT DATE: 20191121
